FAERS Safety Report 7591051-7 (Version None)
Quarter: 2011Q3

REPORT INFORMATION
  Report Type: 
  Country: None (occurrence: None)
  Receive Date: 20110705
  Receipt Date: 20110630
  Transmission Date: 20111222
  Serious: Yes (Hospitalization, Other)
  Sender: FDA-Public Use
  Company Number: JP-PFIZER INC-2011080856

PATIENT
  Age: 63 Year
  Sex: Male

DRUGS (6)
  1. ACTOS [Concomitant]
     Dosage: 30MG DAILY
     Route: 048
  2. ARASENA A [Concomitant]
     Dosage: 5G DAILY
  3. HALCION [Concomitant]
     Route: 048
  4. CANDESARTAN CILEXETIL [Concomitant]
     Dosage: 8MG DAILY
     Route: 048
  5. WARFARIN [Concomitant]
     Dosage: 3.5MG DAILY
     Route: 048
  6. LYRICA [Suspect]
     Indication: NEURALGIA
     Dosage: 150MG, DAILY
     Route: 048

REACTIONS (2)
  - PERICARDIAL EFFUSION [None]
  - CARDIAC FAILURE [None]
